FAERS Safety Report 7380561-3 (Version None)
Quarter: 2011Q1

REPORT INFORMATION
  Report Type: 
  Country: None (occurrence: None)
  Receive Date: 20110321
  Receipt Date: 20110310
  Transmission Date: 20110831
  Serious: Yes (Other)
  Sender: FDA-Public Use
  Company Number: US-1185376

PATIENT

DRUGS (2)
  1. EPINEPHRINE [Concomitant]
  2. BSS [Suspect]
     Dosage: INTRAOCULAR
     Route: 031
     Dates: start: 20110309, end: 20110309

REACTIONS (1)
  - TOXIC ANTERIOR SEGMENT SYNDROME [None]
